FAERS Safety Report 9606298 (Version 1)
Quarter: 2013Q4

REPORT INFORMATION
  Report Type: Spontaneous
  Country: US (occurrence: US)
  Receive Date: 20131008
  Receipt Date: 20131008
  Transmission Date: 20140711
  Serious: No
  Sender: FDA-Public Use
  Company Number: US-AMGEN-USASP2013049698

PATIENT
  Age: 81 Year
  Sex: Female

DRUGS (9)
  1. PROLIA [Suspect]
     Indication: OSTEOPOROSIS
     Dosage: UNK
     Dates: start: 2012
  2. SYNTHROID [Concomitant]
     Dosage: .025 MG, QD
  3. ZOLOFT [Concomitant]
     Dosage: 25 MG, QD
  4. WARFARIN [Concomitant]
     Dosage: 1 MG, QD
  5. LOVASTATIN [Concomitant]
     Dosage: 20 MG, QD
  6. EVISTA [Concomitant]
     Dosage: 60 MG, QD
  7. VITAMIN D                          /00107901/ [Concomitant]
     Dosage: 2000 IU, QD
  8. CALCIUM [Concomitant]
     Dosage: 500 MG, BID
  9. CENTRUM SILVER                     /02363801/ [Concomitant]
     Dosage: UNK UNK, QD

REACTIONS (1)
  - Joint crepitation [Unknown]
